FAERS Safety Report 9176895 (Version 8)
Quarter: 2023Q1

REPORT INFORMATION
  Report Type: Spontaneous
  Country: GB (occurrence: GB)
  Receive Date: 20130321
  Receipt Date: 20230217
  Transmission Date: 20230417
  Serious: Yes (Hospitalization, Other)
  Sender: FDA-Public Use
  Company Number: GB-JNJFOC-20040901000

PATIENT
  Age: 55 Year
  Sex: Female
  Weight: 62 kg

DRUGS (13)
  1. IBUPROFEN [Suspect]
     Active Substance: IBUPROFEN
     Indication: Arthralgia
     Dosage: 400 MG, TID (DOSE: 400 MG TDS)
     Route: 048
     Dates: start: 20031202, end: 200401
  2. IBUPROFEN [Suspect]
     Active Substance: IBUPROFEN
     Dosage: DOSE: 400 MG TDS
     Route: 048
     Dates: start: 200312, end: 200401
  3. VIREAD [Suspect]
     Active Substance: TENOFOVIR DISOPROXIL FUMARATE
     Indication: HIV infection
     Route: 048
     Dates: start: 200302, end: 200401
  4. VIREAD [Suspect]
     Active Substance: TENOFOVIR DISOPROXIL FUMARATE
     Dosage: 100 MG, QD (DOSE: 300 MG OD
     Route: 048
     Dates: start: 200401, end: 200401
  5. KALETRA [Concomitant]
     Active Substance: LOPINAVIR\RITONAVIR
     Indication: Product used for unknown indication
     Dosage: 3 BID PO
     Route: 048
     Dates: start: 200302, end: 200401
  6. KALETRA [Concomitant]
     Active Substance: LOPINAVIR\RITONAVIR
     Indication: HIV infection
  7. ABACAVIR [Concomitant]
     Active Substance: ABACAVIR
     Indication: HIV infection
     Dosage: QD
     Route: 048
     Dates: start: 200302, end: 200401
  8. ATENOLOL [Concomitant]
     Active Substance: ATENOLOL
     Indication: Product used for unknown indication
     Dosage: 50 MG, QD  1: THERAPY START DATE TEXT: UNKNOWN , THERAPY END DATE TEXT: UNKNOWN
     Route: 048
  9. ATENOLOL [Concomitant]
     Active Substance: ATENOLOL
     Dosage: 50 MG, QD
     Route: 048
  10. FLUCONAZOLE [Concomitant]
     Active Substance: FLUCONAZOLE
     Indication: Product used for unknown indication
     Dosage: 200 MG, QD
     Route: 048
     Dates: start: 200401, end: 200401
  11. SULFAMETHOXAZOLE\TRIMETHOPRIM [Concomitant]
     Active Substance: SULFAMETHOXAZOLE\TRIMETHOPRIM
     Indication: Product used for unknown indication
     Route: 048
     Dates: end: 200401
  12. BACTRIM [Concomitant]
     Active Substance: SULFAMETHOXAZOLE\TRIMETHOPRIM
     Indication: Product used for unknown indication
     Dosage: 960 MG (DOSAGE FORM: UNKNOWN, DAILY DOSE TEXT: 960 MG)?THERAPY START DATE TEXT: UNKNOWN
     Route: 048
     Dates: end: 200401
  13. BACTRIM [Concomitant]
     Active Substance: SULFAMETHOXAZOLE\TRIMETHOPRIM
     Route: 048
     Dates: end: 200401

REACTIONS (3)
  - Metabolic acidosis [Recovered/Resolved]
  - Renal tubular acidosis [Recovered/Resolved]
  - Acute kidney injury [Recovered/Resolved]

NARRATIVE: CASE EVENT DATE: 20040123
